FAERS Safety Report 9573622 (Version 1)
Quarter: 2013Q4

REPORT INFORMATION
  Report Type: Spontaneous
  Country: US (occurrence: US)
  Receive Date: 20131001
  Receipt Date: 20131001
  Transmission Date: 20140711
  Serious: No
  Sender: FDA-Public Use
  Company Number: US-PURDUE-USA-2012-0083039

PATIENT
  Age: 56 Year
  Sex: Female

DRUGS (3)
  1. BUTRANS [Suspect]
     Indication: FIBROMYALGIA
     Dosage: 20 MCG, Q1H
     Route: 062
     Dates: start: 201202
  2. BUTRANS [Suspect]
     Dosage: 10 MCG, Q1H
     Route: 062
     Dates: start: 201201
  3. BUTRANS [Suspect]
     Dosage: 5 MCG, Q1H
     Route: 062
     Dates: start: 201112

REACTIONS (5)
  - Inadequate analgesia [Unknown]
  - Application site pruritus [Not Recovered/Not Resolved]
  - Application site pain [Unknown]
  - Application site burn [Unknown]
  - Product quality issue [Unknown]
